FAERS Safety Report 4558663-6 (Version None)
Quarter: 2005Q1

REPORT INFORMATION
  Report Type: 
  Country: None (occurrence: None)
  Receive Date: 20050121
  Receipt Date: 20050121
  Transmission Date: 20050727
  Serious: Yes (Death)
  Sender: FDA-Public Use
  Company Number: None

PATIENT
  Age: 78 Year
  Sex: Female
  Weight: 47.6277 kg

DRUGS (1)
  1. BEXTRA [Suspect]
     Indication: ANALGESIC EFFECT
     Dosage: 10 MG 1X /DAY
     Dates: start: 20040728, end: 20040924

REACTIONS (1)
  - GASTROINTESTINAL NECROSIS [None]
